FAERS Safety Report 7690856-1 (Version None)
Quarter: 2011Q3

REPORT INFORMATION
  Report Type: 
  Country: None (occurrence: None)
  Receive Date: 20110818
  Receipt Date: 20110808
  Transmission Date: 20111222
  Serious: Yes (Hospitalization)
  Sender: FDA-Public Use
  Company Number: PHHY2011JP71622

PATIENT
  Age: 50 Year
  Sex: Male

DRUGS (5)
  1. PENTCILLIN [Concomitant]
  2. ALLEGRA [Concomitant]
  3. MUCOSTA [Concomitant]
  4. RIFAMPICIN [Suspect]
     Indication: ARTHRITIS BACTERIAL
     Dosage: 450 MG, TID
     Route: 048
     Dates: start: 20110624, end: 20110714
  5. LOXOPROFEN [Concomitant]

REACTIONS (1)
  - INTERSTITIAL LUNG DISEASE [None]
